FAERS Safety Report 17599518 (Version 2)
Quarter: 2024Q3

REPORT INFORMATION
  Report Type: Spontaneous
  Country: US (occurrence: US)
  Receive Date: 20200330
  Receipt Date: 20240913
  Transmission Date: 20241016
  Serious: No
  Sender: JOHNSON AND JOHNSON
  Company Number: US-JNJFOC-20200341707

PATIENT
  Sex: Male

DRUGS (1)
  1. RISPERIDONE [Suspect]
     Active Substance: RISPERIDONE
     Indication: Product used for unknown indication
     Dosage: IN VARYING DOSES OF 0.25, 0.75, 0.5, AND 1 MG WITH VARYING FREQUENCIES OF TWICE AND ONCE DAILY.
     Route: 048
     Dates: start: 2011, end: 2014

REACTIONS (2)
  - Emotional disorder [Unknown]
  - Gynaecomastia [Recovering/Resolving]

NARRATIVE: CASE EVENT DATE: 20120101
